FAERS Safety Report 4542005-6 (Version None)
Quarter: 2004Q4

REPORT INFORMATION
  Report Type: 
  Country: None (occurrence: None)
  Receive Date: 20041227
  Receipt Date: 20041213
  Transmission Date: 20050328
  Serious: Yes (Disabling, Other)
  Sender: FDA-Public Use
  Company Number: 2004049304

PATIENT
  Age: 19 Year
  Sex: Male
  Weight: 70 kg

DRUGS (15)
  1. AZITHROMYCIN [Suspect]
     Indication: GASTROENTERITIS CRYPTOSPORIDIAL
     Dosage: 500 MG ( 1 IN 1 D), ORAL
     Route: 048
     Dates: start: 20040610, end: 20040803
  2. CYCLOSPORINE [Suspect]
     Indication: PROPHYLAXIS AGAINST TRANSPLANT REJECTION
     Dosage: (2 IN 1 D), INTRAVENOUS
     Route: 042
     Dates: start: 20040614, end: 20040906
  3. FLUDARABINE PHOSPHATE 9FLUDARABINE PHSOPHATE) [Concomitant]
  4. MELPHALAN (MELPHALAN) [Concomitant]
  5. ANTITHYMOCYTE IMMUNOGLOBULIN (ANTITHYMOCYTE IMMUNOGLOBULIN) [Concomitant]
  6. METHOTREXATE [Concomitant]
  7. FILGRASTIM (FILGRASTIM) [Concomitant]
  8. ACYCLOVIR [Concomitant]
  9. IMMUNE GLOBULIN INTRAVENOUS (HUMAN) [Concomitant]
  10. HEPARIN-FRACTION, SODIUM SALT (HEPARIN-FRACTION, SODIUM SALT) [Concomitant]
  11. URSODEOXYCHOLIC ACID (URSODEOXYCHOLIC ACID) [Concomitant]
  12. LACTULOSE [Concomitant]
  13. CIPROFLOXACIN HYDROCHLORIDE 9CIPROFLOXACIN HYDROCHLORIDE) [Concomitant]
  14. FLUCONAZOLE [Concomitant]
  15. BACTRIM [Concomitant]

REACTIONS (10)
  - BALLISMUS [None]
  - BEDRIDDEN [None]
  - BLOOD BILIRUBIN INCREASED [None]
  - COUGH [None]
  - DIARRHOEA [None]
  - EPSTEIN-BARR VIRUS INFECTION [None]
  - GASTROENTERITIS CRYPTOSPORIDIAL [None]
  - OFF LABEL USE [None]
  - PYREXIA [None]
  - SPEECH DISORDER [None]
